FAERS Safety Report 5900197-8 (Version None)
Quarter: 2008Q3

REPORT INFORMATION
  Report Type: 
  Country: None (occurrence: None)
  Receive Date: 20080926
  Receipt Date: 20080925
  Transmission Date: 20090109
  Serious: Yes (Hospitalization)
  Sender: FDA-Public Use
  Company Number: CH-BRISTOL-MYERS SQUIBB COMPANY-14304703

PATIENT
  Age: 48 Year
  Sex: Female
  Weight: 65 kg

DRUGS (11)
  1. TAXOL [Suspect]
     Indication: BREAST CANCER IN SITU
     Route: 041
     Dates: start: 20080721
  2. ENDOXAN [Suspect]
     Indication: BREAST CANCER IN SITU
     Dosage: INITIATED ON 19MAY2008 THERAPY DURATION : 50 DAYS
     Route: 041
     Dates: start: 20080519, end: 20080707
  3. NEULASTA [Suspect]
     Indication: BREAST CANCER IN SITU
     Dosage: TAKEN ON 08JUL2008
     Route: 041
     Dates: start: 20080606, end: 20080608
  4. NEULASTA [Suspect]
     Indication: PROPHYLAXIS
     Dosage: TAKEN ON 08JUL2008
     Route: 041
     Dates: start: 20080606, end: 20080608
  5. EPIRUBICIN [Suspect]
     Indication: BREAST CANCER IN SITU
     Dosage: TAKEN ON 19MAY2008
     Route: 041
     Dates: start: 20080519, end: 20080707
  6. ZOFRAN [Concomitant]
     Route: 041
     Dates: start: 20080519
  7. SOLU-MEDROL [Concomitant]
     Route: 041
     Dates: start: 20080519
  8. METOCLOPRAMIDE HYDROCHLORIDE [Concomitant]
     Dosage: TAKEN AS VIALS STRENGTH: 10 MG
     Route: 041
     Dates: start: 20080519
  9. METOPROLOL SUCCINATE [Concomitant]
     Indication: ESSENTIAL HYPERTENSION
     Dosage: COATED TABS STRENGTH: 47.5MG
     Route: 048
  10. CIMICIFUGAE RHIZOME [Concomitant]
     Route: 048
  11. BLACK COHOSH [Concomitant]
     Route: 048

REACTIONS (1)
  - LUNG INFILTRATION [None]
